FAERS Safety Report 21724295 (Version 1)
Quarter: 2022Q4

REPORT INFORMATION
  Report Type: Other
  Country: None (occurrence: TR)
  Receive Date: 20221213
  Receipt Date: 20221213
  Transmission Date: 20230113
  Serious: Yes (Hospitalization)
  Sender: FDA-Public Use
  Company Number: TR-B.Braun Medical Inc.-2135841

PATIENT
  Age: 3 Year
  Sex: Male

DRUGS (1)
  1. DEXTROSE AND SODIUM CHLORIDE [Suspect]
     Active Substance: DEXTROSE MONOHYDRATE\SODIUM CHLORIDE
     Indication: Hypercalcaemia

REACTIONS (1)
  - Drug ineffective [Recovered/Resolved]
